FAERS Safety Report 12069710 (Version 2)
Quarter: 2016Q1

REPORT INFORMATION
  Report Type: Report from Study
  Country: TR (occurrence: TR)
  Receive Date: 20160211
  Receipt Date: 20160301
  Transmission Date: 20160526
  Serious: Yes (Death, Hospitalization)
  Sender: FDA-Public Use
  Company Number: TR-ABBVIE-16P-161-1556631-00

PATIENT
  Age: 73 Year
  Sex: Female
  Weight: 60 kg

DRUGS (3)
  1. PK MERZ [Concomitant]
     Active Substance: AMANTADINE SULFATE
     Indication: PARKINSON^S DISEASE
     Route: 048
     Dates: end: 20151115
  2. MIRAPEX [Concomitant]
     Active Substance: PRAMIPEXOLE DIHYDROCHLORIDE
     Indication: PARKINSON^S DISEASE
     Route: 048
     Dates: end: 20151115
  3. DUODOPA [Suspect]
     Active Substance: CARBIDOPA\LEVODOPA
     Indication: PARKINSON^S DISEASE
     Dosage: MORNING DOSE: 6 ML, CONTINUOUS DOSE: 2.1 ML, EXTRA DOSE: 0.5 ML
     Route: 050
     Dates: start: 20150928, end: 20151005

REACTIONS (5)
  - Blood glucose increased [Fatal]
  - Myocardial infarction [Fatal]
  - General physical health deterioration [Fatal]
  - Dyspnoea [Fatal]
  - Loss of consciousness [Fatal]

NARRATIVE: CASE EVENT DATE: 20151115
